FAERS Safety Report 20650664 (Version 1)
Quarter: 2022Q1

REPORT INFORMATION
  Report Type: Report from Study
  Country: US (occurrence: US)
  Receive Date: 20220329
  Receipt Date: 20220329
  Transmission Date: 20220423
  Serious: Yes (Other)
  Sender: FDA-Public Use
  Company Number: US-TAKEDA-2022TUS020716

PATIENT
  Age: 60 Year
  Sex: Female

DRUGS (1)
  1. VORTIOXETINE [Suspect]
     Active Substance: VORTIOXETINE
     Indication: Product used for unknown indication
     Dosage: 20 MILLIGRAM, QD
     Route: 048
     Dates: end: 20220326

REACTIONS (3)
  - Cerebrovascular accident [Unknown]
  - Therapy interrupted [Unknown]
  - Memory impairment [Unknown]

NARRATIVE: CASE EVENT DATE: 20220326
